FAERS Safety Report 4707445-0 (Version None)
Quarter: 2005Q3

REPORT INFORMATION
  Report Type: 
  Country: None (occurrence: None)
  Receive Date: 20050706
  Receipt Date: 20050624
  Transmission Date: 20060218
  Serious: Yes (Death, Other)
  Sender: FDA-Public Use
  Company Number: 200515925GDDC

PATIENT
  Age: 58 Year
  Sex: Female

DRUGS (6)
  1. DOCETAXEL [Suspect]
     Indication: OESOPHAGEAL CANCER METASTATIC
  2. CISPLATIN [Suspect]
     Indication: OESOPHAGEAL CANCER METASTATIC
  3. FLUOROURACIL [Suspect]
     Indication: OESOPHAGEAL CANCER METASTATIC
  4. DEXAMETHASONE [Suspect]
     Indication: VOMITING
  5. OXALIPLATIN [Suspect]
     Indication: OESOPHAGEAL CANCER METASTATIC
  6. IRINOTECAN [Suspect]
     Indication: OESOPHAGEAL CANCER METASTATIC

REACTIONS (5)
  - ABDOMINAL PAIN [None]
  - DEATH [None]
  - LARGE INTESTINE PERFORATION [None]
  - PERITONITIS [None]
  - WHITE BLOOD CELL COUNT INCREASED [None]
